FAERS Safety Report 9748862 (Version 1)
Quarter: 2013Q4

REPORT INFORMATION
  Report Type: Spontaneous
  Country: US (occurrence: US)
  Receive Date: 20131212
  Receipt Date: 20131212
  Transmission Date: 20140711
  Serious: No
  Sender: FDA-Public Use
  Company Number: US-INCYTE CORPORATION-2013IN002056

PATIENT
  Age: 60 Year
  Sex: Female

DRUGS (1)
  1. JAKAFI [Suspect]
     Dosage: 20 MG QAM AND 15MG QPM
     Route: 048
     Dates: start: 20120629

REACTIONS (2)
  - Musculoskeletal pain [Recovered/Resolved]
  - Herpes zoster [Recovered/Resolved]
